FAERS Safety Report 8026500 (Version 5)
Quarter: 2014Q4

REPORT INFORMATION
  Report Type: Spontaneous
  Country: US (occurrence: US)
  Receive Date: 20110708
  Receipt Date: 20141224
  Transmission Date: 20150529
  Serious: Yes (Other)
  Sender: FDA-Public Use
  Company Number: US-ROCHE-548695

PATIENT
  Age: 14 Year
  Sex: Male
  Weight: 99.8 kg

DRUGS (9)
  1. ACCUTANE [Suspect]
     Active Substance: ISOTRETINOIN
     Route: 065
     Dates: start: 19980624, end: 19980827
  2. ACCUTANE [Suspect]
     Active Substance: ISOTRETINOIN
     Route: 065
     Dates: start: 19950602, end: 199510
  3. ACCUTANE [Suspect]
     Active Substance: ISOTRETINOIN
     Route: 065
     Dates: start: 19961007, end: 19970620
  4. ACCUTANE [Suspect]
     Active Substance: ISOTRETINOIN
     Indication: ACNE
     Dosage: 40 MG ALTERNATING WITH 80 MG EVERY OTHER DAY
     Route: 065
     Dates: start: 19950505, end: 19950601
  5. ACCUTANE [Suspect]
     Active Substance: ISOTRETINOIN
     Route: 065
     Dates: start: 19980424, end: 19980525
  6. ACCUTANE [Suspect]
     Active Substance: ISOTRETINOIN
     Route: 065
     Dates: start: 19980220, end: 19980322
  7. ACCUTANE [Suspect]
     Active Substance: ISOTRETINOIN
     Dosage: 80 MG ALTERNATING WITH 120 MG EVERY OTHER DAY
     Route: 065
     Dates: start: 19980323, end: 19980423
  8. ACCUTANE [Suspect]
     Active Substance: ISOTRETINOIN
     Dosage: 40 MG ALTERNATING WITH 80 MG EVERY OTHER DAY
     Route: 065
     Dates: start: 19980526, end: 19980623
  9. KENALOG [Concomitant]
     Active Substance: TRIAMCINOLONE ACETONIDE
     Route: 065

REACTIONS (14)
  - Colitis ulcerative [Unknown]
  - Large intestine polyp [Unknown]
  - Sacroiliitis [Unknown]
  - Depression [Unknown]
  - Acne [Not Recovered/Not Resolved]
  - Colitis ulcerative [Unknown]
  - Crohn^s disease [Unknown]
  - Arthralgia [Recovered/Resolved]
  - Inflammatory bowel disease [Unknown]
  - Ill-defined disorder [Recovered/Resolved]
  - Lip dry [Recovered/Resolved]
  - Blood triglycerides increased [Not Recovered/Not Resolved]
  - Proctitis [Unknown]
  - Haemorrhoids [Unknown]

NARRATIVE: CASE EVENT DATE: 19950602
